FAERS Safety Report 21944627 (Version 3)
Quarter: 2023Q1

REPORT INFORMATION
  Report Type: Spontaneous
  Country: HR (occurrence: HR)
  Receive Date: 20230202
  Receipt Date: 20230214
  Transmission Date: 20230417
  Serious: Yes (Other)
  Sender: FDA-Public Use
  Company Number: HR-ALKALOID-2022HQ23410

PATIENT
  Age: 60 Year
  Sex: Female

DRUGS (6)
  1. PANTOPRAZOLE [Interacting]
     Active Substance: PANTOPRAZOLE
     Indication: Dyspepsia
     Dosage: 20 MILLIGRAM, QD
     Route: 048
  2. PANTOPRAZOLE [Interacting]
     Active Substance: PANTOPRAZOLE
     Indication: Duodenal ulcer
  3. FAMOTIDINE [Interacting]
     Active Substance: FAMOTIDINE
     Indication: Dyspepsia
     Dosage: 20 MILLIGRAM, QD
     Route: 048
     Dates: start: 2022
  4. FAMOTIDINE [Interacting]
     Active Substance: FAMOTIDINE
     Indication: Duodenal ulcer
     Dosage: PATIENT INCREASED THE PRESCRIBED DOSE
     Route: 048
     Dates: start: 2022
  5. RIBOCICLIB [Interacting]
     Active Substance: RIBOCICLIB
     Indication: Breast cancer metastatic
     Dosage: 600MG, QD (COMPLETED THREE CYCLES OF 600 MG/DAY)
     Route: 048
     Dates: start: 2022
  6. ANASTROZOLE [Concomitant]
     Active Substance: ANASTROZOLE
     Indication: Breast cancer metastatic
     Dosage: 1 MILLIGRAM, QD
     Route: 048
     Dates: start: 2022

REACTIONS (11)
  - Electrocardiogram QT prolonged [Unknown]
  - Heart rate increased [Unknown]
  - Palpitations [Unknown]
  - Dyspepsia [Unknown]
  - Vertigo [Unknown]
  - Asthenia [Unknown]
  - Dizziness [Unknown]
  - Abdominal discomfort [Unknown]
  - Drug interaction [Unknown]
  - Drug ineffective [Unknown]
  - Intentional product use issue [Unknown]

NARRATIVE: CASE EVENT DATE: 20220101
